FAERS Safety Report 15894546 (Version 1)
Quarter: 2019Q1

REPORT INFORMATION
  Report Type: Spontaneous
  Country: US (occurrence: US)
  Receive Date: 20190108
  Receipt Date: 20190108
  Transmission Date: 20190417
  Serious: No
  Sender: FDA-Public Use
  Company Number: None

PATIENT
  Age: 21 Year
  Sex: Female

DRUGS (1)
  1. HUMIRA [Suspect]
     Active Substance: ADALIMUMAB
     Indication: CHOLELITHIASIS
     Dosage: ?          OTHER DOSE:160MG WK 0/80MG; 180MG THEN 80MG SUB-Q?
     Route: 058
     Dates: start: 20181219

REACTIONS (3)
  - Injection site reaction [None]
  - Lethargy [None]
  - Fatigue [None]

NARRATIVE: CASE EVENT DATE: 20181219
